FAERS Safety Report 24557293 (Version 2)
Quarter: 2024Q4

REPORT INFORMATION
  Report Type: Spontaneous
  Country: FR (occurrence: FR)
  Receive Date: 20241028
  Receipt Date: 20241126
  Transmission Date: 20250114
  Serious: Yes (Hospitalization)
  Sender: MYLAN
  Company Number: None

PATIENT
  Age: 43 Year
  Sex: Female
  Weight: 86 kg

DRUGS (14)
  1. ROPIVACAINE [Suspect]
     Active Substance: ROPIVACAINE
     Indication: Anaesthesia
     Dosage: UNK
     Route: 042
     Dates: start: 20240920, end: 20240920
  2. CIPROFLOXACIN [Suspect]
     Active Substance: CIPROFLOXACIN
     Indication: Agranulocytosis
     Dosage: 800 MILLIGRAM, QD
     Route: 042
     Dates: start: 20240912, end: 20240918
  3. VANCOMYCIN [Suspect]
     Active Substance: VANCOMYCIN
     Indication: Agranulocytosis
     Dosage: 3 GRAM, QD
     Route: 042
     Dates: start: 20240912, end: 20240918
  4. ACETAMINOPHEN [Suspect]
     Active Substance: ACETAMINOPHEN
     Indication: Angina pectoris
     Dosage: 1 GRAM, Q6H (IF NEEDED)
     Route: 042
     Dates: start: 20240904, end: 20240923
  5. ACETAMINOPHEN [Suspect]
     Active Substance: ACETAMINOPHEN
     Dosage: 1 GRAM, Q6H (IF NEEDED))
     Route: 048
     Dates: start: 20240924, end: 20240928
  6. PIPERACILLIN SODIUM [Suspect]
     Active Substance: PIPERACILLIN SODIUM
     Indication: Agranulocytosis
     Dosage: 16 GRAM, QD
     Route: 042
     Dates: start: 20240904, end: 20240919
  7. TAZOBACTAM [Suspect]
     Active Substance: TAZOBACTAM
     Indication: Agranulocytosis
     Dosage: 16 GRAM, QD
     Route: 042
     Dates: start: 20240904, end: 20240919
  8. NEFOPAM HYDROCHLORIDE [Suspect]
     Active Substance: NEFOPAM HYDROCHLORIDE
     Indication: Angina pectoris
     Dosage: 120 MILLIGRAM, QD
     Route: 042
     Dates: start: 20240907, end: 20240918
  9. ENOXAPARIN SODIUM [Suspect]
     Active Substance: ENOXAPARIN SODIUM
     Indication: Thrombosis prophylaxis
     Dosage: 0.4 MILLILITER, QD
     Route: 058
     Dates: start: 20240906, end: 20241003
  10. MORPHINE [Suspect]
     Active Substance: MORPHINE
     Indication: Angina pectoris
     Dosage: 10 MILLIGRAM, QD (PARENTERAL)
     Route: 065
     Dates: start: 20240906, end: 20240923
  11. VITAMIN B12 [Suspect]
     Active Substance: CYANOCOBALAMIN
     Indication: Vitamin B12 deficiency
     Dosage: 1 DOSAGE FORM, QD
     Route: 030
     Dates: start: 20240919, end: 20240922
  12. VITAMIN K1 [Suspect]
     Active Substance: PHYTONADIONE
     Indication: Vitamin K deficiency
     Dosage: 10 MILLIGRAM,1 TOTAL
     Route: 048
     Dates: start: 20240919, end: 20240919
  13. IOBITRIDOL [Suspect]
     Active Substance: IOBITRIDOL
     Indication: Imaging procedure
     Dosage: 3 DOSAGE FORM
     Route: 042
     Dates: start: 20240905, end: 20240913
  14. FILGRASTIM [Suspect]
     Active Substance: FILGRASTIM
     Indication: Agranulocytosis
     Dosage: 1 DOSAGE FORM, QD (48 MU/0.5 ML)
     Route: 042
     Dates: start: 20240911, end: 20240913

REACTIONS (1)
  - Symmetrical drug-related intertriginous and flexural exanthema [Recovering/Resolving]

NARRATIVE: CASE EVENT DATE: 20240923
